FAERS Safety Report 5497263-0 (Version None)
Quarter: 2007Q4

REPORT INFORMATION
  Report Type: 
  Country: None (occurrence: None)
  Receive Date: 20071025
  Receipt Date: 20060921
  Transmission Date: 20080405
  Serious: No
  Sender: FDA-Public Use
  Company Number: A0620981A

PATIENT
  Age: 52 Year
  Sex: Female

DRUGS (3)
  1. ADVAIR DISKUS 100/50 [Suspect]
     Indication: CHRONIC OBSTRUCTIVE PULMONARY DISEASE
     Dosage: 1PUFF TWICE PER DAY
     Route: 055
     Dates: end: 20060701
  2. SINGULAIR [Concomitant]
  3. UNKNOWN MEDICATION [Concomitant]
     Indication: HEADACHE

REACTIONS (3)
  - CHEST PAIN [None]
  - HEADACHE [None]
  - OESOPHAGEAL PAIN [None]
